FAERS Safety Report 7626984-6 (Version None)
Quarter: 2011Q3

REPORT INFORMATION
  Report Type: 
  Country: None (occurrence: None)
  Receive Date: 20110721
  Receipt Date: 20110720
  Transmission Date: 20111222
  Serious: Yes (Life-Threatening, Other)
  Sender: FDA-Public Use
  Company Number: GB-BRISTOL-MYERS SQUIBB COMPANY-13984794

PATIENT
  Age: 19 Year
  Sex: Female

DRUGS (15)
  1. CASPOFUNGIN ACETATE [Suspect]
     Route: 042
  2. CHLORPHENIRAMINE MALEATE [Suspect]
     Route: 042
  3. OMEPRAZOLE [Suspect]
  4. MORPHINE [Suspect]
     Route: 042
  5. PIPERACILLIN AND TAZOBACTAM [Suspect]
     Route: 042
  6. VORICONAZOLE [Suspect]
     Route: 048
  7. ETOPOSIDE [Suspect]
     Route: 042
     Dates: start: 20070915
  8. ACYCLOVIR [Suspect]
  9. ONDANSETRON [Suspect]
     Route: 042
  10. NORETHINDRON ACETAE/ETHINYL ESTRADIOL [Suspect]
     Route: 048
  11. ACETAMINOPHEN [Suspect]
     Route: 042
  12. KETALAR [Suspect]
     Indication: PAIN
     Route: 042
     Dates: start: 20070921, end: 20070928
  13. ALLOPURINOL [Suspect]
     Route: 048
  14. TPN [Concomitant]
  15. CYCLOSPORINE [Suspect]

REACTIONS (4)
  - VENOOCCLUSIVE DISEASE [None]
  - DILATATION INTRAHEPATIC DUCT ACQUIRED [None]
  - LIVER FUNCTION TEST ABNORMAL [None]
  - HEPATOTOXICITY [None]
